FAERS Safety Report 4537102-5 (Version None)
Quarter: 2004Q4

REPORT INFORMATION
  Report Type: 
  Country: None (occurrence: None)
  Receive Date: 20041223
  Receipt Date: 20041220
  Transmission Date: 20050328
  Serious: Yes (Life-Threatening)
  Sender: FDA-Public Use
  Company Number: IT-GLAXOSMITHKLINE-B0362803A

PATIENT
  Age: 77 Year
  Sex: Male

DRUGS (4)
  1. LANOXIN [Suspect]
     Indication: CARDIOMYOPATHY
     Dosage: .25MG PER DAY
     Route: 048
     Dates: start: 20020401, end: 20040531
  2. ZYLORIC [Suspect]
     Indication: GOUT
     Dosage: 100MG PER DAY
     Route: 048
     Dates: start: 20031201, end: 20040531
  3. NAPRILENE [Concomitant]
     Indication: CARDIOMYOPATHY
     Dosage: 20MG PER DAY
     Route: 048
     Dates: start: 20020401, end: 20040531
  4. SULPHONAMIDES [Concomitant]
     Indication: CARDIOMYOPATHY
     Dosage: 25MG PER DAY
     Route: 048
     Dates: start: 20020401, end: 20040531

REACTIONS (1)
  - PANCYTOPENIA [None]
